FAERS Safety Report 10172165 (Version 2)
Quarter: 2014Q2

REPORT INFORMATION
  Report Type: Report from Study
  Country: US (occurrence: US)
  Receive Date: 20140515
  Receipt Date: 20140515
  Transmission Date: 20141212
  Serious: No
  Sender: FDA-Public Use
  Company Number: PHHY2011US18094

PATIENT
  Age: 90 Year
  Sex: Female

DRUGS (2)
  1. TASIGNA [Suspect]
     Indication: ILL-DEFINED DISORDER
     Dosage: 300 MG, BID
     Route: 048
     Dates: start: 20101013
  2. TASIGNA [Suspect]
     Dosage: 300 MG, QD
     Route: 048
     Dates: start: 201201

REACTIONS (3)
  - Incorrect dose administered [Unknown]
  - Alopecia [Unknown]
  - Dysgeusia [Unknown]
